FAERS Safety Report 25091159 (Version 2)
Quarter: 2025Q1

REPORT INFORMATION
  Report Type: Spontaneous
  Country: CN (occurrence: CN)
  Receive Date: 20250318
  Receipt Date: 20250320
  Transmission Date: 20250409
  Serious: Yes (Other)
  Sender: PFIZER
  Company Number: CN-PFIZER INC-PV202500031737

PATIENT
  Age: 80 Year
  Sex: Female
  Weight: 55 kg

DRUGS (1)
  1. TYGACIL [Suspect]
     Active Substance: TIGECYCLINE
     Indication: Anti-infective therapy
     Dosage: 50 MG, 2X/DAY
     Route: 041
     Dates: start: 20250220, end: 20250225

REACTIONS (7)
  - Blood fibrinogen decreased [Recovering/Resolving]
  - Prothrombin time prolonged [Recovering/Resolving]
  - Activated partial thromboplastin time prolonged [Unknown]
  - International normalised ratio increased [Unknown]
  - Prothrombin level decreased [Unknown]
  - Prothrombin time ratio increased [Unknown]
  - Thrombin time prolonged [Unknown]

NARRATIVE: CASE EVENT DATE: 20250224
